FAERS Safety Report 17762132 (Version 2)
Quarter: 2022Q4

REPORT INFORMATION
  Report Type: Report from Study
  Country: CO (occurrence: CO)
  Receive Date: 20200508
  Receipt Date: 20221101
  Transmission Date: 20230112
  Serious: Yes (Hospitalization)
  Sender: FDA-Public Use
  Company Number: CO-NOVARTISPH-NVSC2018CO003718

PATIENT
  Sex: Female

DRUGS (1)
  1. EXJADE [Suspect]
     Active Substance: DEFERASIROX
     Indication: Iron metabolism disorder
     Dosage: 1 DOSAGE FORM, QD
     Route: 065

REACTIONS (2)
  - Intestinal obstruction [Unknown]
  - General physical health deterioration [Unknown]
